FAERS Safety Report 9921610 (Version 1)
Quarter: 2014Q1

REPORT INFORMATION
  Report Type: Spontaneous
  Country: US (occurrence: US)
  Receive Date: 20140225
  Receipt Date: 20140225
  Transmission Date: 20141002
  Serious: No
  Sender: FDA-Public Use
  Company Number: US-PFIZER INC-2014052488

PATIENT
  Age: 72 Year
  Sex: Female
  Weight: 68.93 kg

DRUGS (3)
  1. CELEBREX [Suspect]
     Indication: PAIN
     Dosage: 200 MG, 1X/DAY
     Dates: start: 20140218
  2. LANTUS [Concomitant]
     Indication: DIABETES MELLITUS
     Dosage: 36 IU, DAILY
  3. METFORMIN [Concomitant]
     Indication: DIABETES MELLITUS
     Dosage: 1000 MG, DAILY

REACTIONS (1)
  - Diarrhoea [Not Recovered/Not Resolved]
